FAERS Safety Report 16202348 (Version 9)
Quarter: 2019Q4

REPORT INFORMATION
  Report Type: Spontaneous
  Country: US (occurrence: US)
  Receive Date: 20190416
  Receipt Date: 20191227
  Transmission Date: 20200122
  Serious: No
  Sender: FDA-Public Use
  Company Number: US-SA-2019SA102386

PATIENT
  Age: 57 Year
  Sex: Female

DRUGS (1)
  1. DUPIXENT [Suspect]
     Active Substance: DUPILUMAB
     Indication: DERMATITIS ATOPIC
     Dosage: 300 MG, QOW
     Route: 058
     Dates: start: 201802

REACTIONS (17)
  - Memory impairment [Unknown]
  - Nasopharyngitis [Unknown]
  - Weight decreased [Unknown]
  - Tooth disorder [Unknown]
  - Dry skin [Unknown]
  - Product dose omission [Unknown]
  - Pruritus [Unknown]
  - Pain of skin [Unknown]
  - Product use issue [Unknown]
  - Unevaluable event [Unknown]
  - Dysphonia [Unknown]
  - Malaise [Unknown]
  - Discomfort [Unknown]
  - Therapeutic response unexpected [Unknown]
  - Skin exfoliation [Unknown]
  - Formication [Unknown]
  - Back disorder [Unknown]
